FAERS Safety Report 8934996 (Version 2)
Quarter: 2013Q4

REPORT INFORMATION
  Report Type: Spontaneous
  Country: US (occurrence: US)
  Receive Date: 20121129
  Receipt Date: 20131116
  Transmission Date: 20140711
  Serious: No
  Sender: FDA-Public Use
  Company Number: US-B.I. PHARMACEUTICALS,INC./RIDGEFIELD-2012-BI-01106BP

PATIENT
  Age: 69 Year
  Sex: Male
  Weight: 111 kg

DRUGS (10)
  1. AGGRENOX [Suspect]
     Indication: CEREBROVASCULAR ACCIDENT PROPHYLAXIS
     Dosage: DOSE STRENGTH: 25 MG/200 MG; DAILY DOSE: 50MG/400MG
     Route: 048
     Dates: start: 201204
  2. NOVOLIN 70/30 [Concomitant]
     Indication: TYPE 2 DIABETES MELLITUS
     Dosage: DOSE PER APPLICATION: 75 UNITS DAILY DOSE: 150 UNITS
     Route: 058
     Dates: start: 201203
  3. CRESTOR [Concomitant]
     Indication: BLOOD CHOLESTEROL INCREASED
     Dosage: 10 MG
     Route: 048
     Dates: start: 2012
  4. LISINOPRIL [Concomitant]
     Indication: HYPERTENSION
     Dosage: 10 MG
     Route: 048
  5. GLYBURIDE [Concomitant]
     Indication: DIABETES MELLITUS
     Dosage: 1 ANZ
     Route: 048
  6. METOPROLOL [Concomitant]
     Indication: HYPERTENSION
     Dosage: 50 MG
     Route: 048
  7. LEVOTHYROXINE [Concomitant]
     Indication: HYPOTHYROIDISM
     Dosage: 75 MCG
     Route: 048
  8. METFORMIN [Concomitant]
     Indication: DIABETES MELLITUS
     Dosage: 2000 MG
     Route: 048
  9. TRIAMTERENE / HYDROCHLOROTHIAZIDE [Concomitant]
     Indication: HYPERTENSION
     Dosage: DOSE PER APPLICATION AND DAILY DOSE: 37.5MG /25 MG
     Route: 048
  10. ASPIRIN [Concomitant]
     Dosage: 81 MG
     Route: 048

REACTIONS (4)
  - Constipation [Not Recovered/Not Resolved]
  - Abdominal pain upper [Not Recovered/Not Resolved]
  - Weight increased [Not Recovered/Not Resolved]
  - Pre-existing condition improved [Not Recovered/Not Resolved]
